FAERS Safety Report 20771104 (Version 1)
Quarter: 2022Q2

REPORT INFORMATION
  Report Type: Spontaneous
  Country: US (occurrence: US)
  Receive Date: 20220429
  Receipt Date: 20220429
  Transmission Date: 20220720
  Serious: No
  Sender: FDA-Public Use
  Company Number: US-MYLANLABS-2022M1029929

PATIENT
  Age: 53 Year
  Sex: Female
  Weight: 71.67 kg

DRUGS (7)
  1. WIXELA INHUB [Suspect]
     Active Substance: FLUTICASONE PROPIONATE\SALMETEROL XINAFOATE
     Indication: Asthma
     Dosage: 500/50 MICROGRAM, BID
     Route: 055
     Dates: start: 202007
  2. WIXELA INHUB [Suspect]
     Active Substance: FLUTICASONE PROPIONATE\SALMETEROL XINAFOATE
     Dosage: 500/50 MICROGRAM, BID
     Route: 055
     Dates: start: 202007
  3. WIXELA INHUB [Suspect]
     Active Substance: FLUTICASONE PROPIONATE\SALMETEROL XINAFOATE
     Indication: Asthma
     Dosage: 250/50 MICROGRAM
     Route: 055
     Dates: start: 202003
  4. ZYRTEC [Concomitant]
     Active Substance: CETIRIZINE HYDROCHLORIDE
     Dosage: 10 MILLIGRAM, PM (10 MG PILL AT BEDTIME)
     Route: 048
  5. SINGULAIR [Concomitant]
     Active Substance: MONTELUKAST SODIUM
     Indication: Hypersensitivity
     Dosage: 10 MILLIGRAM, PM (10 MG TABLET AT BEDTIME)
     Route: 048
  6. OMEPRAZOLE [Concomitant]
     Active Substance: OMEPRAZOLE
     Indication: Gastric disorder
     Dosage: 20 MILLIGRAM, AM (20 MG CAPSULE IN THE MORNING)
     Route: 048
  7. NASONEX [Concomitant]
     Active Substance: MOMETASONE FUROATE
     Dosage: 50 MICROGRAM, BID (50 MCG 2 NASAL SPRAYS EACH
     Route: 045

REACTIONS (2)
  - Asthma [Recovering/Resolving]
  - Product taste abnormal [Not Recovered/Not Resolved]

NARRATIVE: CASE EVENT DATE: 20220401
